FAERS Safety Report 22948696 (Version 2)
Quarter: 2023Q4

REPORT INFORMATION
  Report Type: Spontaneous
  Country: US (occurrence: US)
  Receive Date: 20230915
  Receipt Date: 20231020
  Transmission Date: 20240109
  Serious: No
  Sender: FDA-Public Use
  Company Number: US-SA-SAC20230915000282

PATIENT
  Age: 36 Year
  Sex: Female

DRUGS (2)
  1. DUPIXENT [Suspect]
     Active Substance: DUPILUMAB
     Indication: Nasal polyps
     Dosage: 300 MG, QOW
     Route: 058
     Dates: start: 2022
  2. DUPIXENT [Suspect]
     Active Substance: DUPILUMAB
     Dosage: 300 MG, FREQUENCY-OTHER
     Route: 058
     Dates: start: 202306

REACTIONS (5)
  - Injection site pain [Unknown]
  - Back pain [Unknown]
  - Pain [Unknown]
  - Arthralgia [Unknown]
  - Needle issue [Unknown]

NARRATIVE: CASE EVENT DATE: 20220101
